FAERS Safety Report 7929196-1 (Version None)
Quarter: 2011Q4

REPORT INFORMATION
  Report Type: 
  Country: None (occurrence: None)
  Receive Date: 20111120
  Receipt Date: 20111025
  Transmission Date: 20120403
  Serious: No
  Sender: FDA-Public Use
  Company Number: US-ROXANE LABORATORIES, INC.-2011-RO-01539RO

PATIENT

DRUGS (1)
  1. LIDOCAINE [Suspect]
     Indication: BRONCHOSCOPY
     Route: 061

REACTIONS (3)
  - LUNG DISORDER [None]
  - WHEEZING [None]
  - CHEST PAIN [None]
